FAERS Safety Report 13602626 (Version 1)
Quarter: 2017Q2

REPORT INFORMATION
  Report Type: Spontaneous
  Country: US (occurrence: US)
  Receive Date: 20170601
  Receipt Date: 20170601
  Transmission Date: 20170830
  Serious: No
  Sender: FDA-Public Use
  Company Number: US-TEVA-774034ACC

PATIENT
  Age: 24 Year
  Sex: Female
  Weight: 104.42 kg

DRUGS (1)
  1. PLAN B ONE-STEP [Suspect]
     Active Substance: LEVONORGESTREL
     Indication: POST COITAL CONTRACEPTION
     Dates: start: 20170521, end: 20170521

REACTIONS (1)
  - Vaginal discharge [Recovered/Resolved]

NARRATIVE: CASE EVENT DATE: 20170524
